FAERS Safety Report 10312639 (Version 1)
Quarter: 2014Q3

REPORT INFORMATION
  Report Type: Spontaneous
  Country: CA (occurrence: None)
  Receive Date: 20140716
  Receipt Date: 20140716
  Transmission Date: 20150326
  Serious: Yes (Other)
  Sender: FDA-Public Use
  Company Number: None

PATIENT
  Age: 61 Year
  Sex: Male

DRUGS (1)
  1. COSOPT [Suspect]
     Active Substance: DORZOLAMIDE HYDROCHLORIDE\TIMOLOL MALEATE
     Indication: NORMAL TENSION GLAUCOMA
     Dosage: 1 PIPETTES, TWICE DAILY, INTO THE EYE
     Dates: start: 20140601, end: 20140714

REACTIONS (6)
  - Eye swelling [None]
  - Product quality issue [None]
  - Vision blurred [None]
  - Ocular hyperaemia [None]
  - Eye irritation [None]
  - Product packaging issue [None]
